FAERS Safety Report 7005771-6 (Version None)
Quarter: 2010Q3

REPORT INFORMATION
  Report Type: 
  Country: None (occurrence: None)
  Receive Date: 20100921
  Receipt Date: 20100910
  Transmission Date: 20110219
  Serious: Yes (Death, Other)
  Sender: FDA-Public Use
  Company Number: GB-JNJFOC-20100903648

PATIENT

DRUGS (6)
  1. INFLIXIMAB, RECOMBINANT [Suspect]
     Indication: ANTI-NEUTROPHIL CYTOPLASMIC ANTIBODY POSITIVE VASCULITIS
     Route: 042
  2. PREDNISOLONE [Concomitant]
  3. COTRIM [Concomitant]
     Indication: INFECTION PROPHYLAXIS
  4. AMPHOTERICIN B [Concomitant]
     Indication: INFECTION PROPHYLAXIS
  5. CYCLOPHOSPHAMIDE [Concomitant]
  6. PEPTIC ULCER DRUG [Concomitant]
     Indication: PROPHYLAXIS

REACTIONS (2)
  - MYCOBACTERIAL INFECTION [None]
  - PNEUMONIA [None]
